FAERS Safety Report 25970444 (Version 1)
Quarter: 2025Q4

REPORT INFORMATION
  Report Type: Other
  Country: EU (occurrence: EU)
  Receive Date: 20251028
  Receipt Date: 20251028
  Transmission Date: 20260119
  Serious: Yes (Hospitalization)
  Sender: ZYDUS PHARM
  Company Number: None

PATIENT

DRUGS (1)
  1. RISEDRONATE SODIUM [Suspect]
     Active Substance: RISEDRONATE SODIUM
     Indication: Osteoporosis
     Dosage: 35 MILLIGRAM,1 WEEK
     Route: 048

REACTIONS (1)
  - Small intestinal ulcer haemorrhage [Unknown]

NARRATIVE: CASE EVENT DATE: 20250901
